FAERS Safety Report 20198006 (Version 1)
Quarter: 2021Q4

REPORT INFORMATION
  Report Type: Spontaneous
  Country: US (occurrence: US)
  Receive Date: 20211217
  Receipt Date: 20211217
  Transmission Date: 20220303
  Serious: No
  Sender: FDA-Public Use
  Company Number: US-ALLERGAN-2116271US

PATIENT
  Sex: Female
  Weight: 90.72 kg

DRUGS (2)
  1. PREDNISOLONE ACETATE [Suspect]
     Active Substance: PREDNISOLONE ACETATE
     Indication: Infection prophylaxis
     Dosage: 1 GTT, BID
     Dates: start: 20210410
  2. PREDNISOLONE ACETATE [Suspect]
     Active Substance: PREDNISOLONE ACETATE
     Indication: Infection

REACTIONS (2)
  - Product dose omission in error [Unknown]
  - Product packaging quantity issue [Unknown]
